FAERS Safety Report 21969025 (Version 1)
Quarter: 2023Q1

REPORT INFORMATION
  Report Type: Spontaneous
  Country: US (occurrence: None)
  Receive Date: 20230207
  Receipt Date: 20230207
  Transmission Date: 20230417
  Serious: No
  Sender: FDA-Public Use
  Company Number: None

PATIENT
  Age: 74 Year
  Sex: Male
  Weight: 75.3 kg

DRUGS (13)
  1. TEMOZOLOMIDE [Suspect]
     Active Substance: TEMOZOLOMIDE
     Indication: Brain neoplasm malignant
     Dosage: 140MG ONCE DAILY ORAL
     Route: 048
     Dates: start: 202212
  2. ASPIRIN [Concomitant]
     Active Substance: ASPIRIN
  3. ATORVASTATIN [Concomitant]
     Active Substance: ATORVASTATIN
  4. BISACODYL [Concomitant]
     Active Substance: BISACODYL
  5. COLACE [Concomitant]
     Active Substance: DOCUSATE SODIUM
  6. FAMOTIDINE [Concomitant]
     Active Substance: FAMOTIDINE
  7. NORCO [Concomitant]
     Active Substance: ACETAMINOPHEN\HYDROCODONE BITARTRATE
  8. HYDROCORTISONE [Concomitant]
     Active Substance: HYDROCORTISONE
  9. JANUVIA [Concomitant]
     Active Substance: SITAGLIPTIN PHOSPHATE
  10. METFORMIN [Concomitant]
     Active Substance: METFORMIN HYDROCHLORIDE
  11. METOPROLOL [Concomitant]
     Active Substance: METOPROLOL
  12. NESINA [Concomitant]
     Active Substance: ALOGLIPTIN BENZOATE
  13. XANAX [Concomitant]
     Active Substance: ALPRAZOLAM

REACTIONS (2)
  - Urticaria [None]
  - Therapeutic product effect incomplete [None]
